FAERS Safety Report 9519222 (Version 3)
Quarter: 2013Q3

REPORT INFORMATION
  Report Type: Spontaneous
  Country: JP (occurrence: JP)
  Receive Date: 20130912
  Receipt Date: 20130923
  Transmission Date: 20140515
  Serious: Yes (Other)
  Sender: FDA-Public Use
  Company Number: JP-TEVA-428365ISR

PATIENT
  Age: 3 Year
  Sex: Male
  Weight: 7.6 kg

DRUGS (1)
  1. CISPLATIN [Suspect]
     Indication: HEPATOBLASTOMA
     Dosage: 80 MG/SQM, BIWEEKLY

REACTIONS (1)
  - Nephropathy [Unknown]
